FAERS Safety Report 8612404 (Version 21)
Quarter: 2014Q4

REPORT INFORMATION
  Report Type: Spontaneous
  Country: CA (occurrence: CA)
  Receive Date: 20120613
  Receipt Date: 20141217
  Transmission Date: 20150529
  Serious: Yes (Other)
  Sender: FDA-Public Use
  Company Number: CA-ROCHE-1025145

PATIENT
  Age: 36 Year
  Sex: Female

DRUGS (6)
  1. CORTISONE [Concomitant]
     Active Substance: CORTISONE\HYDROCORTISONE
  2. XOLAIR [Suspect]
     Active Substance: OMALIZUMAB
     Route: 058
     Dates: start: 20111026
  3. XOLAIR [Suspect]
     Active Substance: OMALIZUMAB
     Indication: ASTHMA
     Route: 058
     Dates: start: 20100816
  4. XOLAIR [Suspect]
     Active Substance: OMALIZUMAB
     Route: 058
     Dates: start: 20130702
  5. XOLAIR [Suspect]
     Active Substance: OMALIZUMAB
     Route: 058
     Dates: start: 20141208
  6. ADVAIR HFA [Suspect]
     Active Substance: FLUTICASONE PROPIONATE\SALMETEROL XINAFOATE
     Indication: PRODUCT USED FOR UNKNOWN INDICATION
     Route: 065

REACTIONS (37)
  - Ear pain [Unknown]
  - Blood pressure decreased [Not Recovered/Not Resolved]
  - Nausea [Unknown]
  - Pain of skin [Unknown]
  - Body temperature decreased [Unknown]
  - Influenza like illness [Unknown]
  - Fatigue [Unknown]
  - Respiratory tract congestion [Unknown]
  - Dyspnoea [Unknown]
  - Respiration abnormal [Unknown]
  - Oropharyngeal pain [Unknown]
  - Dizziness [Unknown]
  - Pulmonary congestion [Unknown]
  - Headache [Unknown]
  - Abscess [Unknown]
  - Hypoaesthesia [Unknown]
  - Arthralgia [Unknown]
  - Toothache [Unknown]
  - Stress [Unknown]
  - Rash [Unknown]
  - Rhinorrhoea [Unknown]
  - Nasopharyngitis [Unknown]
  - Limb discomfort [Unknown]
  - Productive cough [Unknown]
  - Sneezing [Unknown]
  - Sinusitis [Unknown]
  - Sinus headache [Unknown]
  - Hypersensitivity [Unknown]
  - Precancerous cells present [Unknown]
  - Cervix carcinoma [Unknown]
  - Menorrhagia [Unknown]
  - Dysmenorrhoea [Unknown]
  - Wheezing [Unknown]
  - Influenza [Unknown]
  - Cough [Unknown]
  - Productive cough [Unknown]
  - Spinal osteoarthritis [Unknown]

NARRATIVE: CASE EVENT DATE: 201110
